FAERS Safety Report 7131383-X (Version None)
Quarter: 2010Q4

REPORT INFORMATION
  Report Type: 
  Country: None (occurrence: None)
  Receive Date: 20101201
  Receipt Date: 20101129
  Transmission Date: 20110411
  Serious: Yes (Other)
  Sender: FDA-Public Use
  Company Number: CHPA2010US18276

PATIENT
  Age: 69 Year
  Sex: Male
  Weight: 81.633 kg

DRUGS (1)
  1. ASCRIPTIN BUFFERED REG STRENGTH TABLETS (NCH) [Suspect]
     Indication: ANTICOAGULANT THERAPY
     Dosage: 325 MG, QOD
     Route: 048
     Dates: start: 19630101

REACTIONS (2)
  - OFF LABEL USE [None]
  - TYPE 2 DIABETES MELLITUS [None]
